FAERS Safety Report 7095903-6 (Version None)
Quarter: 2010Q4

REPORT INFORMATION
  Report Type: 
  Country: None (occurrence: None)
  Receive Date: 20101101
  Receipt Date: 20101019
  Transmission Date: 20110411
  Serious: Yes (Other)
  Sender: FDA-Public Use
  Company Number: 2010-00936

PATIENT
  Age: 70 Year
  Sex: Female

DRUGS (6)
  1. LISINOPRIL [Suspect]
     Indication: HYPERTENSION
     Dosage: 2.5 MG, ORAL
     Route: 048
     Dates: end: 20100823
  2. RITUXIMAB (UNKNOWN) [Suspect]
     Indication: RHEUMATOID ARTHRITIS
     Dosage: 1000 MG, INTRAVENOUS
     Route: 042
     Dates: start: 20100813
  3. AMITRIPTYLINE (UNKNOWN) [Concomitant]
  4. MEBEVERINE (UNKNOWN) [Concomitant]
  5. SULPHASALAZINE (UNKNOWN) [Concomitant]
  6. TRAMADOL HCL [Concomitant]

REACTIONS (3)
  - DYSPNOEA [None]
  - MOUTH ULCERATION [None]
  - SWOLLEN TONGUE [None]
